FAERS Safety Report 12528331 (Version 1)
Quarter: 2016Q3

REPORT INFORMATION
  Report Type: Spontaneous
  Country: FR (occurrence: FR)
  Receive Date: 20160705
  Receipt Date: 20160705
  Transmission Date: 20161109
  Serious: Yes (Death, Hospitalization)
  Sender: FDA-Public Use
  Company Number: FR-SA-2016SA121947

PATIENT
  Age: 84 Year
  Sex: Male

DRUGS (8)
  1. COLCHICINE. [Concomitant]
     Active Substance: COLCHICINE
  2. ASPEGIC NOURRISSONS [Suspect]
     Active Substance: ASPIRIN LYSINE
     Indication: CORONARY ANGIOPLASTY
     Route: 048
     Dates: end: 20160104
  3. CANDESARTAN [Concomitant]
     Active Substance: CANDESARTAN
  4. CLOPIDOGREL BISULFATE. [Suspect]
     Active Substance: CLOPIDOGREL BISULFATE
     Indication: CORONARY ANGIOPLASTY
     Route: 048
     Dates: end: 20160104
  5. ATORVASTATIN [Concomitant]
     Active Substance: ATORVASTATIN
  6. LOXEN [Concomitant]
     Active Substance: NICARDIPINE HYDROCHLORIDE
  7. OMEPRAZOLE. [Concomitant]
     Active Substance: OMEPRAZOLE
  8. LOPRESSOR [Concomitant]
     Active Substance: METOPROLOL TARTRATE

REACTIONS (3)
  - Cerebral haematoma [Fatal]
  - Coma [Fatal]
  - Hemiplegia [Fatal]

NARRATIVE: CASE EVENT DATE: 20160104
